FAERS Safety Report 4344104-0 (Version None)
Quarter: 2004Q2

REPORT INFORMATION
  Report Type: 
  Country: None (occurrence: None)
  Receive Date: 20040419
  Receipt Date: 20040413
  Transmission Date: 20050107
  Serious: Yes (Other)
  Sender: FDA-Public Use
  Company Number: 2004-03-1798

PATIENT
  Age: 55 Year
  Sex: Male
  Weight: 47 kg

DRUGS (10)
  1. INTRON A [Suspect]
     Indication: HEPATITIS C
     Dosage: SEE IMAGE
     Route: 030
     Dates: start: 20020401, end: 20020419
  2. INTRON A [Suspect]
     Indication: HEPATITIS C
     Dosage: SEE IMAGE
     Route: 030
     Dates: start: 20020422, end: 20040109
  3. INTRON A [Suspect]
     Indication: HEPATITIS C
     Dosage: SEE IMAGE
     Route: 030
     Dates: start: 20040112, end: 20040213
  4. INTRON A [Suspect]
     Indication: HEPATITIS C
     Dosage: SEE IMAGE
     Route: 030
     Dates: start: 20020401, end: 20040308
  5. INTRON A [Suspect]
     Indication: HEPATITIS C
     Dosage: SEE IMAGE
     Route: 030
     Dates: start: 20040116, end: 20040308
  6. NORVASC [Concomitant]
  7. TAGAMET [Concomitant]
  8. SELEBEX [Concomitant]
  9. NICOTINAMIDE [Concomitant]
  10. ... [Concomitant]

REACTIONS (1)
  - LACUNAR INFARCTION [None]
